FAERS Safety Report 10371087 (Version 1)
Quarter: 2014Q3

REPORT INFORMATION
  Report Type: Spontaneous
  Country: NO (occurrence: NO)
  Receive Date: 20140808
  Receipt Date: 20140808
  Transmission Date: 20150326
  Serious: Yes (Hospitalization)
  Sender: FDA-Public Use
  Company Number: NO-ACTAVIS-2014-17944

PATIENT
  Sex: Female

DRUGS (2)
  1. VALSARTAN-HYDROCHLOROTHIAZID ACTAVIS [Suspect]
     Active Substance: HYDROCHLOROTHIAZIDE\VALSARTAN
     Indication: PRODUCT USED FOR UNKNOWN INDICATION
     Dosage: 160 MG/12,5 MG UNK
     Route: 065
  2. VALSARTAN-HYDROCHLOROTHIAZID ACTAVIS [Suspect]
     Active Substance: HYDROCHLOROTHIAZIDE\VALSARTAN
     Dosage: 80 MG/12,5 MG UNK
     Route: 065

REACTIONS (1)
  - Hypertension [Unknown]
